FAERS Safety Report 25751493 (Version 1)
Quarter: 2025Q3

REPORT INFORMATION
  Report Type: Spontaneous
  Country: US (occurrence: US)
  Receive Date: 20250902
  Receipt Date: 20250902
  Transmission Date: 20251020
  Serious: No
  Sender: ROCHE
  Company Number: US-ROCHE-10000373047

PATIENT
  Age: 69 Year
  Sex: Male

DRUGS (1)
  1. ALECTINIB [Suspect]
     Active Substance: ALECTINIB
     Indication: Product used for unknown indication
     Route: 065
     Dates: start: 202002

REACTIONS (3)
  - Rash [Unknown]
  - Fluid retention [Unknown]
  - Haematuria [Unknown]

NARRATIVE: CASE EVENT DATE: 20200401
